FAERS Safety Report 24585656 (Version 2)
Quarter: 2024Q4

REPORT INFORMATION
  Report Type: Spontaneous
  Country: US (occurrence: US)
  Receive Date: 20241106
  Receipt Date: 20241210
  Transmission Date: 20250115
  Serious: Yes (Hospitalization)
  Sender: PAREXEL
  Company Number: US-BELCHER PHARMACEUTICALS, LLC-2024US003945

PATIENT

DRUGS (1)
  1. SEMAGLUTIDE [Suspect]
     Active Substance: SEMAGLUTIDE
     Indication: Weight control
     Dosage: 5 MG/2ML (2.5 MG/ML)
     Route: 065

REACTIONS (2)
  - Colitis [Recovered/Resolved]
  - Off label use [Unknown]
